FAERS Safety Report 10690528 (Version 1)
Quarter: 2015Q1

REPORT INFORMATION
  Report Type: Spontaneous
  Country: US (occurrence: US)
  Receive Date: 20150105
  Receipt Date: 20150105
  Transmission Date: 20150720
  Serious: Yes (Hospitalization)
  Sender: FDA-Public Use
  Company Number: US-RECORDATI RARE DISEASES-US-RRD-14-00138

PATIENT
  Age: 30 Year
  Sex: Male

DRUGS (1)
  1. METHAMPHETAMINE [Suspect]
     Active Substance: METHAMPHETAMINE
     Indication: PRODUCT USED FOR UNKNOWN INDICATION
     Route: 065

REACTIONS (4)
  - Cardiac failure acute [Unknown]
  - Left ventricular dysfunction [Unknown]
  - Pulmonary arterial hypertension [Unknown]
  - Drug withdrawal syndrome [Unknown]
